FAERS Safety Report 4267162-0 (Version None)
Quarter: 2004Q1

REPORT INFORMATION
  Report Type: 
  Country: None (occurrence: None)
  Receive Date: 20040107
  Receipt Date: 20031216
  Transmission Date: 20041129
  Serious: Yes (Disabling)
  Sender: FDA-Public Use
  Company Number: F01200301483

PATIENT
  Age: 59 Year
  Sex: Male

DRUGS (6)
  1. (OXALIPLATIN) - SOLUTION - UNIT DOSE : UNKNOWN [Suspect]
     Indication: COLON CANCER
     Dosage: 260 MG INTRAVENOUS NOS
     Route: 042
     Dates: start: 20031102, end: 20031102
  2. (OXALIPLATIN) - SOLUTION - UNIT DOSE : UNKNOWN [Suspect]
     Indication: SURGERY
     Dosage: 260 MG INTRAVENOUS NOS
     Route: 042
     Dates: start: 20031102, end: 20031102
  3. (CAPECITABINE) - TABLET - UNIT DOSE : UNKNOWN [Suspect]
     Indication: COLON CANCER
     Dosage: 2000 TWICE A DAY PER ORAL FROM D1 TO D15
     Route: 048
     Dates: start: 20030824, end: 20031116
  4. LITHIUM CARBONATE [Concomitant]
  5. PERPHENAN (PERPHENAZINE) [Concomitant]
  6. GILEX (DOXEPIN HCL) [Concomitant]

REACTIONS (3)
  - DEPRESSION [None]
  - MANIA [None]
  - PSYCHOTIC DISORDER [None]
